FAERS Safety Report 12865607 (Version 7)
Quarter: 2018Q1

REPORT INFORMATION
  Report Type: Spontaneous
  Country: US (occurrence: US)
  Receive Date: 20161020
  Receipt Date: 20180102
  Transmission Date: 20180508
  Serious: Yes (Death, Other)
  Sender: FDA-Public Use
  Company Number: US-PFIZER INC-2016476573

PATIENT
  Age: 72 Year
  Sex: Female
  Weight: 44.9 kg

DRUGS (6)
  1. IBRANCE [Suspect]
     Active Substance: PALBOCICLIB
     Dosage: 75 MG, CYCLIC, (DAYS 1-21 Q28 DAYS
     Route: 048
  2. IBRANCE [Suspect]
     Active Substance: PALBOCICLIB
     Dosage: 75 MG, CYCLIC, (DAYS 1-21 Q28 DAYS
     Route: 048
  3. IBRANCE [Suspect]
     Active Substance: PALBOCICLIB
     Dosage: 75 MG, CYCLIC, (DAYS 1-21 Q28 DAYS
     Route: 048
  4. IBRANCE [Suspect]
     Active Substance: PALBOCICLIB
     Indication: BREAST CANCER METASTATIC
     Dosage: 75 MG, CYCLIC, (DAYS 1-21 Q28 DAYS
     Route: 048
     Dates: start: 20160522
  5. IBRANCE [Suspect]
     Active Substance: PALBOCICLIB
     Dosage: 75 MG, CYCLIC, (DAYS 1-21 Q28 DAYS)
     Route: 048
     Dates: end: 201712
  6. XGEVA [Concomitant]
     Active Substance: DENOSUMAB
     Dosage: UNK

REACTIONS (13)
  - Drug dose omission [Unknown]
  - Renal impairment [Unknown]
  - Impaired healing [Unknown]
  - Alopecia [Unknown]
  - Haemoglobin decreased [Unknown]
  - Decreased appetite [Not Recovered/Not Resolved]
  - Red blood cell count decreased [Unknown]
  - Death [Fatal]
  - Wound [Unknown]
  - Blood iron decreased [Unknown]
  - Osteomyelitis [Unknown]
  - Weight decreased [Unknown]
  - Peripheral swelling [Recovered/Resolved]

NARRATIVE: CASE EVENT DATE: 20171219
